FAERS Safety Report 7972633-7 (Version None)
Quarter: 2011Q4

REPORT INFORMATION
  Report Type: 
  Country: None (occurrence: None)
  Receive Date: 20111213
  Receipt Date: 20111202
  Transmission Date: 20120403
  Serious: Yes (Hospitalization)
  Sender: FDA-Public Use
  Company Number: JP-JNJFOC-20111202003

PATIENT
  Sex: Male

DRUGS (5)
  1. MICARDIS [Concomitant]
     Route: 048
  2. INSULIN [Concomitant]
     Route: 048
  3. USTEKINUMAB [Suspect]
     Route: 058
     Dates: start: 20110803
  4. USTEKINUMAB [Suspect]
     Indication: PSORIASIS
     Route: 058
     Dates: start: 20110706
  5. LASIX [Concomitant]
     Route: 048

REACTIONS (1)
  - EOSINOPHILIC PNEUMONIA [None]
